FAERS Safety Report 9302843 (Version 2)
Quarter: 2013Q2

REPORT INFORMATION
  Report Type: Spontaneous
  Country: US (occurrence: US)
  Receive Date: 20130522
  Receipt Date: 20130617
  Transmission Date: 20140414
  Serious: Yes (Other)
  Sender: FDA-Public Use
  Company Number: US-ASTELLAS-2013US004320

PATIENT
  Age: 65 Year
  Sex: Male

DRUGS (3)
  1. VESICARE [Suspect]
     Indication: BLADDER DISORDER
     Dosage: 10 MG, UNKNOWN/D
     Route: 048
     Dates: start: 20061201
  2. VESICARE [Suspect]
     Indication: BENIGN PROSTATIC HYPERPLASIA
  3. VESICARE [Suspect]
     Indication: BLADDER DISORDER

REACTIONS (16)
  - Off label use [Unknown]
  - Multiple sclerosis [Unknown]
  - Essential hypertension [Unknown]
  - Prostatic specific antigen increased [Unknown]
  - Colonoscopy [Unknown]
  - Nocturia [Recovered/Resolved]
  - Back pain [Unknown]
  - Pain [Unknown]
  - Swelling [Unknown]
  - Musculoskeletal stiffness [Unknown]
  - Anxiety disorder due to a general medical condition [Unknown]
  - Depression [Unknown]
  - Haematuria [Recovered/Resolved]
  - Organic erectile dysfunction [Recovered/Resolved]
  - Erectile dysfunction [Recovered/Resolved]
  - Urinary retention [Recovered/Resolved]
